FAERS Safety Report 16210113 (Version 1)
Quarter: 2019Q2

REPORT INFORMATION
  Report Type: Report from Study
  Country: None (occurrence: US)
  Receive Date: 20190417
  Receipt Date: 20190417
  Transmission Date: 20190711
  Serious: Yes (Other)
  Sender: FDA-Public Use
  Company Number: US-ABBVIE-19K-163-2743111-00

PATIENT
  Age: 25 Year
  Sex: Female

DRUGS (2)
  1. PREDNISONE. [Concomitant]
     Active Substance: PREDNISONE
     Indication: PRODUCT USED FOR UNKNOWN INDICATION
  2. HUMIRA [Suspect]
     Active Substance: ADALIMUMAB
     Indication: COLITIS ULCERATIVE
     Route: 058
     Dates: end: 201901

REACTIONS (17)
  - Malaise [Unknown]
  - Mental disorder [Unknown]
  - Arthralgia [Unknown]
  - Fear [Unknown]
  - Cough [Unknown]
  - Asthenia [Unknown]
  - Paranasal sinus hypersecretion [Unknown]
  - Obsessive-compulsive disorder [Unknown]
  - Joint lock [Unknown]
  - Pharyngitis streptococcal [Unknown]
  - Endometriosis [Unknown]
  - Middle ear effusion [Unknown]
  - Panic attack [Unknown]
  - Chondropathy [Unknown]
  - Joint stiffness [Unknown]
  - Clostridium difficile infection [Unknown]
  - Arthropathy [Unknown]

NARRATIVE: CASE EVENT DATE: 201901
